FAERS Safety Report 21584699 (Version 1)
Quarter: 2022Q4

REPORT INFORMATION
  Report Type: Spontaneous
  Country: US (occurrence: None)
  Receive Date: 20221110
  Receipt Date: 20221110
  Transmission Date: 20230113
  Serious: Yes (unspecified)
  Sender: FDA-Public Use
  Company Number: None

PATIENT
  Age: 27 Year
  Sex: Female
  Weight: 72 kg

DRUGS (4)
  1. MIRENA [Suspect]
     Active Substance: LEVONORGESTREL
     Indication: Contraception
     Dosage: OTHER FREQUENCY : IMPLANTED;?
     Route: 067
     Dates: start: 20221101, end: 20221106
  2. ATENOLOL [Concomitant]
     Active Substance: ATENOLOL
  3. LEVOTHYROXINE [Concomitant]
     Active Substance: LEVOTHYROXINE
  4. Prenatal vitiamin [Concomitant]

REACTIONS (3)
  - Hypertension [None]
  - Urticaria [None]
  - Complication associated with device [None]

NARRATIVE: CASE EVENT DATE: 20221103
